FAERS Safety Report 18115518 (Version 3)
Quarter: 2022Q1

REPORT INFORMATION
  Report Type: Spontaneous
  Country: AU (occurrence: AU)
  Receive Date: 20200805
  Receipt Date: 20220309
  Transmission Date: 20220423
  Serious: Yes (Life-Threatening, Hospitalization, Other)
  Sender: FDA-Public Use
  Company Number: AU-JNJFOC-20200743167

PATIENT
  Age: 38 Year
  Sex: Male

DRUGS (4)
  1. FENTANYL CITRATE [Suspect]
     Active Substance: FENTANYL CITRATE
     Indication: Induction of anaesthesia
     Dosage: LOW DOSE
     Route: 065
     Dates: start: 201710
  2. KETAMINE [Suspect]
     Active Substance: KETAMINE
     Indication: Induction of anaesthesia
     Route: 065
  3. KETAMINE [Suspect]
     Active Substance: KETAMINE
     Route: 065
     Dates: start: 201710
  4. ROCURONIUM BROMIDE [Suspect]
     Active Substance: ROCURONIUM BROMIDE
     Indication: Pancreatitis acute
     Route: 065

REACTIONS (8)
  - Sympatholysis [Recovered/Resolved]
  - Autonomic nervous system imbalance [Recovered/Resolved]
  - Pulseless electrical activity [Recovered/Resolved]
  - Parasympathetic nerve injury [Unknown]
  - Vagus nerve disorder [Unknown]
  - Bradycardia [Recovered/Resolved]
  - Abdominal distension [Unknown]
  - Pulmonary function test decreased [Unknown]

NARRATIVE: CASE EVENT DATE: 20171001
